FAERS Safety Report 4607441-8 (Version None)
Quarter: 2005Q1

REPORT INFORMATION
  Report Type: 
  Country: None (occurrence: None)
  Receive Date: 20050309
  Receipt Date: 20050224
  Transmission Date: 20050727
  Serious: Yes (Hospitalization)
  Sender: FDA-Public Use
  Company Number: 212692

PATIENT
  Age: 76 Year
  Sex: Female

DRUGS (1)
  1. RITUXAN [Suspect]
     Indication: LYMPHOMA
     Dosage: 450 MG, 1/WEEK, INTRAVENOUS
     Route: 042
     Dates: start: 20041222, end: 20041222

REACTIONS (1)
  - HYPERAMMONAEMIA [None]
